FAERS Safety Report 14246358 (Version 1)
Quarter: 2017Q4

REPORT INFORMATION
  Report Type: Spontaneous
  Country: US (occurrence: US)
  Receive Date: 20171204
  Receipt Date: 20171204
  Transmission Date: 20180321
  Serious: No
  Sender: FDA-Public Use
  Company Number: US-TEVA-823622ACC

PATIENT
  Sex: Female

DRUGS (1)
  1. TOLTERODINE TARTRATE. [Suspect]
     Active Substance: TOLTERODINE TARTRATE
     Indication: URINARY INCONTINENCE
     Dates: end: 20170909

REACTIONS (6)
  - Amnesia [Unknown]
  - Dry mouth [Unknown]
  - Abdominal pain [Unknown]
  - Headache [Unknown]
  - Dry eye [Unknown]
  - Constipation [Unknown]
